FAERS Safety Report 5604682-8 (Version None)
Quarter: 2008Q1

REPORT INFORMATION
  Report Type: 
  Country: None (occurrence: None)
  Receive Date: 20080124
  Receipt Date: 20080124
  Transmission Date: 20080703
  Serious: Yes (Other)
  Sender: FDA-Public Use
  Company Number: None

PATIENT
  Age: 72 Year
  Sex: Female
  Weight: 63.05 kg

DRUGS (1)
  1. ZETIA [Suspect]
     Indication: BLOOD CHOLESTEROL INCREASED
     Dosage: ONE PER DAY BUCCAL
     Route: 002
     Dates: start: 20060727, end: 20070826

REACTIONS (7)
  - HEADACHE [None]
  - HERPES ZOSTER [None]
  - INSOMNIA [None]
  - MIDDLE INSOMNIA [None]
  - MYALGIA [None]
  - ORAL INTAKE REDUCED [None]
  - SPEECH DISORDER [None]
